FAERS Safety Report 9255754 (Version 1)
Quarter: 2013Q2

REPORT INFORMATION
  Report Type: Spontaneous
  Country: ES (occurrence: None)
  Receive Date: 20130418
  Receipt Date: 20130418
  Transmission Date: 20140414
  Serious: Yes (Other)
  Sender: FDA-Public Use
  Company Number: NSR_01121_2013

PATIENT
  Age: 68 Year
  Sex: Female

DRUGS (12)
  1. TRAMADOL (TRAMADOL) [Suspect]
     Indication: ANALGESIC THERAPY
     Dates: start: 2011
  2. VENLAFAXINE [Suspect]
     Indication: DEPRESSION
     Dates: start: 200906
  3. MEMANTINE [Concomitant]
  4. CANDESARTAN [Concomitant]
  5. CALCIUM WITH VITAMIN D /01233101/ [Concomitant]
  6. PENTOXIFYLLINE [Concomitant]
  7. FERROUS SULFATE [Concomitant]
  8. AMLODIPINE [Concomitant]
  9. OMEPRAZOLE [Concomitant]
  10. SIMVASTATIN [Concomitant]
  11. INSULIN GLARGINE [Concomitant]
  12. CORTICOSTEROID NOS [Concomitant]

REACTIONS (10)
  - Serotonin syndrome [None]
  - Hypoglycaemia [None]
  - Tearfulness [None]
  - Urinary tract infection [None]
  - Drug interaction [None]
  - Diarrhoea [None]
  - Hypertension [None]
  - Anxiety [None]
  - Akathisia [None]
  - Cognitive disorder [None]
